FAERS Safety Report 17820443 (Version 1)
Quarter: 2020Q2

REPORT INFORMATION
  Report Type: Report from Study
  Country: US (occurrence: US)
  Receive Date: 20200525
  Receipt Date: 20200525
  Transmission Date: 20200714
  Serious: Yes (Hospitalization)
  Sender: FDA-Public Use
  Company Number: US-SA-2020SA122755

PATIENT
  Age: 82 Year
  Sex: Male

DRUGS (3)
  1. LEUPROLIDE ACETATE. [Suspect]
     Active Substance: LEUPROLIDE ACETATE
     Indication: PROSTATE CANCER METASTATIC
     Dosage: 22.5 MG, EVERY 3 MONTHS BEGINNING WEEK 4 (ONE MONTH AFTER DEGARELIX)
     Route: 058
     Dates: start: 20191216
  2. DOCETAXEL. [Suspect]
     Active Substance: DOCETAXEL
     Indication: PROSTATE CANCER METASTATIC
     Dosage: 75 MG/M2, DAY 1, WEEKS 10-25, Q3W STARTING WEEK 10
     Route: 042
     Dates: start: 20200127
  3. CEMIPLIMAB [Suspect]
     Active Substance: CEMIPLIMAB
     Indication: PROSTATE CANCER METASTATIC
     Dosage: 350 MG, Q3W
     Route: 042
     Dates: start: 20191216

REACTIONS (1)
  - Pneumonia [Not Recovered/Not Resolved]

NARRATIVE: CASE EVENT DATE: 20200407
